FAERS Safety Report 23696700 (Version 1)
Quarter: 2024Q2

REPORT INFORMATION
  Report Type: Spontaneous
  Country: PL (occurrence: PL)
  Receive Date: 20240402
  Receipt Date: 20240402
  Transmission Date: 20240716
  Serious: Yes (Other)
  Sender: FDA-Public Use
  Company Number: PL-ASTELLAS-2024EU002949

PATIENT
  Sex: Female

DRUGS (9)
  1. TACROLIMUS [Suspect]
     Active Substance: TACROLIMUS
     Indication: Graft versus host disease
     Dosage: UNK UNK, UNKNOWN FREQ.
     Route: 065
  2. BUDESONIDE [Suspect]
     Active Substance: BUDESONIDE
     Indication: Graft versus host disease
     Dosage: UNK UNK, UNKNOWN FREQ.
     Route: 048
  3. RUXOLITINIB [Suspect]
     Active Substance: RUXOLITINIB
     Indication: Graft versus host disease
     Dosage: 10 MG, UNKNOWN FREQ. (2X5MG)
     Route: 065
  4. RUXOLITINIB [Suspect]
     Active Substance: RUXOLITINIB
     Route: 065
  5. METHYLPREDNISOLONE [Suspect]
     Active Substance: METHYLPREDNISOLONE
     Indication: Graft versus host disease
     Dosage: 2 MG/KG, UNKNOWN FREQ. (2 MG/KG BODY WEIGHT)
     Route: 065
  6. METHOTREXATE [Concomitant]
     Active Substance: METHOTREXATE
     Indication: Product used for unknown indication
     Dosage: UNK UNK, UNKNOWN FREQ.
     Route: 065
  7. RIFAXIMIN [Concomitant]
     Active Substance: RIFAXIMIN
     Indication: Faecal calprotectin
     Dosage: UNK UNK, UNKNOWN FREQ.
     Route: 065
  8. AZITHROMYCIN [Concomitant]
     Active Substance: AZITHROMYCIN
     Indication: Faecal calprotectin
     Dosage: UNK UNK, UNKNOWN FREQ.
     Route: 065
  9. CYCLOSPORINE [Concomitant]
     Active Substance: CYCLOSPORINE
     Indication: Product used for unknown indication
     Dosage: UNK UNK, UNKNOWN FREQ.
     Route: 065

REACTIONS (14)
  - Pneumatosis intestinalis [Unknown]
  - Myopathy [Unknown]
  - Hypogammaglobulinaemia [Unknown]
  - Cardiac failure [Unknown]
  - Epstein-Barr virus infection reactivation [Unknown]
  - Type 2 diabetes mellitus [Unknown]
  - Cytomegalovirus infection [Unknown]
  - Platelet count abnormal [Unknown]
  - Haemorrhagic diathesis [Unknown]
  - Hypoalbuminaemia [Unknown]
  - Asthenia [Unknown]
  - Hypoproteinaemia [Unknown]
  - Cognitive disorder [Unknown]
  - Off label use [Unknown]
